FAERS Safety Report 6652970-9 (Version None)
Quarter: 2010Q1

REPORT INFORMATION
  Report Type: 
  Country: None (occurrence: None)
  Receive Date: 20100326
  Receipt Date: 20100315
  Transmission Date: 20100710
  Serious: Yes (Hospitalization, Other)
  Sender: FDA-Public Use
  Company Number: PHHY2010FR15483

PATIENT
  Sex: Male
  Weight: 99.5 kg

DRUGS (3)
  1. MYCOPHENOLIC ACID [Suspect]
     Indication: RENAL TRANSPLANT
     Dosage: 1440 MG/DAY
     Dates: start: 20080906
  2. NEORAL [Suspect]
     Indication: RENAL TRANSPLANT
     Dosage: 220 MG/DAY
     Dates: start: 20090323
  3. NEORAL [Suspect]
     Dosage: 160 MG/DAY
     Dates: start: 20091007

REACTIONS (5)
  - ABDOMINAL PAIN LOWER [None]
  - ABSCESS [None]
  - ACQUIRED HYDROCELE [None]
  - EVENTRATION PROCEDURE [None]
  - SURGERY [None]
